FAERS Safety Report 5007407-2 (Version None)
Quarter: 2006Q2

REPORT INFORMATION
  Report Type: 
  Country: None (occurrence: None)
  Receive Date: 20060518
  Receipt Date: 20060518
  Transmission Date: 20061013
  Serious: Yes (Hospitalization)
  Sender: FDA-Public Use
  Company Number: None

PATIENT
  Sex: Male

DRUGS (12)
  1. ENOXAPARIN SODIUM [Suspect]
     Indication: DEEP VEIN THROMBOSIS
     Dosage: 130 MG DAILY SQ
     Route: 058
     Dates: start: 20051214, end: 20060330
  2. ENOXAPARIN SODIUM [Suspect]
     Indication: DISEASE RECURRENCE
     Dosage: 130 MG DAILY SQ
     Route: 058
     Dates: start: 20051214, end: 20060330
  3. APAP TAB [Concomitant]
  4. CALCIUM GLUCONATE [Concomitant]
  5. DARBEPOETIN [Concomitant]
  6. FUROSEMIDE [Concomitant]
  7. INSULIN [Concomitant]
  8. METOPROLOL [Concomitant]
  9. MIRTAZAPINE [Concomitant]
  10. OMEPRAZOLE [Concomitant]
  11. SIMVASTATIN [Concomitant]
  12. TERAZOSIN HCL [Concomitant]

REACTIONS (1)
  - GASTROINTESTINAL HAEMORRHAGE [None]
